FAERS Safety Report 15046304 (Version 1)
Quarter: 2018Q2

REPORT INFORMATION
  Report Type: Spontaneous
  Country: HU (occurrence: HU)
  Receive Date: 20180621
  Receipt Date: 20180621
  Transmission Date: 20180711
  Serious: Yes (Life-Threatening, Hospitalization)
  Sender: FDA-Public Use
  Company Number: HU-TEVA-2018-HU-905775

PATIENT
  Age: 80 Year
  Sex: Male

DRUGS (14)
  1. CONCOR [Concomitant]
     Active Substance: BISOPROLOL FUMARATE
     Indication: ARRHYTHMIA
  2. CARDURA XL [Concomitant]
     Active Substance: DOXAZOSIN MESYLATE
     Indication: DIURETIC THERAPY
     Dosage: 4 MILLIGRAM DAILY;
  3. FUROSEMID-CHINOIN [Concomitant]
     Indication: DIURETIC THERAPY
     Dosage: 1-1-0
  4. LERCATON [Concomitant]
     Indication: HYPERTENSION
     Dosage: 20 MILLIGRAM DAILY;
     Route: 065
  5. ASPIRIN PROTECT [Suspect]
     Active Substance: ASPIRIN
     Indication: ANTIPLATELET THERAPY
     Dosage: 100 MILLIGRAM DAILY;
     Route: 048
     Dates: start: 20180403
  6. CO-IRABEL [Concomitant]
     Indication: HYPERTENSION
     Dosage: 1 DOSAGE FORMS DAILY;
     Route: 065
  7. LERCATON [Concomitant]
     Route: 048
  8. CLOPIDOGREL [Suspect]
     Active Substance: CLOPIDOGREL BISULFATE
     Indication: ANTIPLATELET THERAPY
     Dosage: 75 MILLIGRAM DAILY;
     Route: 065
     Dates: start: 20180403
  9. NITRODERM [Concomitant]
     Active Substance: NITROGLYCERIN
     Indication: ANGINA PECTORIS
     Dosage: 1 DOSAGE FORMS DAILY; 5MG/24H
     Route: 062
  10. FUROSEMID-CHINOIN [Concomitant]
     Route: 048
  11. IRABEL [Concomitant]
     Active Substance: IRBESARTAN
     Indication: HYPERTENSION
     Dosage: 150 MILLIGRAM DAILY;
     Route: 065
  12. BETOPTIC [Concomitant]
     Active Substance: BETAXOLOL HYDROCHLORIDE
     Route: 065
  13. PRADAXA [Suspect]
     Active Substance: DABIGATRAN ETEXILATE MESYLATE
     Indication: ANTICOAGULANT THERAPY
     Route: 065
  14. KALDYUM [Concomitant]
     Active Substance: POTASSIUM CHLORIDE
     Indication: MINERAL SUPPLEMENTATION
     Route: 065

REACTIONS (2)
  - Vascular stent occlusion [Recovered/Resolved]
  - Drug ineffective [Recovered/Resolved]

NARRATIVE: CASE EVENT DATE: 20180409
